FAERS Safety Report 24453353 (Version 2)
Quarter: 2024Q4

REPORT INFORMATION
  Report Type: Report from Study
  Country: US (occurrence: US)
  Receive Date: 20241017
  Receipt Date: 20241018
  Transmission Date: 20250114
  Serious: No
  Sender: ROCHE
  Company Number: US-ROCHE-3265978

PATIENT
  Age: 45 Year
  Sex: Female

DRUGS (5)
  1. RITUXAN [Suspect]
     Active Substance: RITUXIMAB
     Indication: Chronic inflammatory demyelinating polyradiculoneuropathy
     Dosage: DATE OF SERVICE: 10/FEB/2023, 10/MAR/2023.
     Route: 042
  2. RITUXAN [Suspect]
     Active Substance: RITUXIMAB
     Route: 042
     Dates: start: 20230728
  3. RITUXAN [Suspect]
     Active Substance: RITUXIMAB
     Route: 042
     Dates: start: 20230901
  4. SODIUM CHLORIDE [Concomitant]
     Active Substance: SODIUM CHLORIDE
     Route: 042
     Dates: start: 20230728
  5. SODIUM CHLORIDE [Concomitant]
     Active Substance: SODIUM CHLORIDE
     Route: 042
     Dates: start: 20230901

REACTIONS (2)
  - Off label use [Unknown]
  - Drug hypersensitivity [Unknown]
